FAERS Safety Report 14774274 (Version 2)
Quarter: 2018Q2

REPORT INFORMATION
  Report Type: Spontaneous
  Country: PL (occurrence: PL)
  Receive Date: 20180418
  Receipt Date: 20180501
  Transmission Date: 20180711
  Serious: Yes (Life-Threatening, Hospitalization)
  Sender: FDA-Public Use
  Company Number: PL-ELI_LILLY_AND_COMPANY-PL201804004360

PATIENT
  Sex: Female

DRUGS (3)
  1. CALCIUM DOBECILATE [Concomitant]
     Indication: PRODUCT USED FOR UNKNOWN INDICATION
     Dosage: UNK UNK, UNKNOWN
     Route: 065
     Dates: start: 20180320
  2. ZYPADHERA [Suspect]
     Active Substance: OLANZAPINE PAMOATE
     Indication: PSYCHOTIC DISORDER
     Dosage: 405 MG, EVERY 3 WEEKS
     Route: 030
     Dates: start: 20150907
  3. METYPRED                           /00049601/ [Concomitant]
     Active Substance: METHYLPREDNISOLONE
     Indication: PRODUCT USED FOR UNKNOWN INDICATION
     Dosage: 16 MG, UNKNOWN
     Route: 065
     Dates: start: 20180320

REACTIONS (4)
  - Schizophrenia [Unknown]
  - Headache [Unknown]
  - Hypertensive crisis [Recovered/Resolved]
  - Cerebrovascular disorder [Unknown]

NARRATIVE: CASE EVENT DATE: 20180323
